FAERS Safety Report 7648927-1 (Version None)
Quarter: 2011Q3

REPORT INFORMATION
  Report Type: 
  Country: None (occurrence: None)
  Receive Date: 20110801
  Receipt Date: 20110719
  Transmission Date: 20111222
  Serious: Yes (Hospitalization, Other)
  Sender: FDA-Public Use
  Company Number: US-RB-030623-11

PATIENT
  Age: 56 Year
  Sex: Female

DRUGS (5)
  1. SUBOXONE [Suspect]
     Indication: PAIN MANAGEMENT
     Dosage: SUBLINGUAL FILM
     Route: 060
     Dates: start: 20110101, end: 20110601
  2. WELLBUTRIN [Suspect]
     Indication: DEPRESSION
     Dosage: DOSAGE INFORMATION UNKNOWN
     Route: 048
  3. SUBOXONE [Suspect]
     Dosage: DOSAGE INFORMATION UNKNOWN- SUBLINGUAL FILM- TAPERING DOSE
     Route: 060
     Dates: start: 20110601
  4. SUBOXONE [Suspect]
     Route: 060
     Dates: start: 20100101, end: 20110101
  5. SUBOXONE [Suspect]
     Indication: PAIN MANAGEMENT
     Route: 060
     Dates: start: 20060101, end: 20100101

REACTIONS (8)
  - OFF LABEL USE [None]
  - PAIN [None]
  - NAUSEA [None]
  - DIZZINESS [None]
  - WRONG TECHNIQUE IN DRUG USAGE PROCESS [None]
  - BACK PAIN [None]
  - BREAST INFECTION [None]
  - CONDITION AGGRAVATED [None]
